FAERS Safety Report 9937556 (Version 1)
Quarter: 2014Q1

REPORT INFORMATION
  Report Type: Spontaneous
  Country: US (occurrence: US)
  Receive Date: 20140303
  Receipt Date: 20140303
  Transmission Date: 20141002
  Serious: Yes (Hospitalization)
  Sender: FDA-Public Use
  Company Number: US-BIOGENIDEC-2014BI018357

PATIENT
  Sex: Male

DRUGS (2)
  1. AVONEX [Suspect]
     Indication: MULTIPLE SCLEROSIS
     Route: 030
     Dates: start: 20000617, end: 20060712
  2. ZANAX [Concomitant]
     Indication: AGITATION

REACTIONS (3)
  - Rectal fissure [Recovered/Resolved]
  - Intestinal polyp [Recovered/Resolved]
  - Urinary retention [Recovered/Resolved]
